FAERS Safety Report 14740219 (Version 2)
Quarter: 2018Q2

REPORT INFORMATION
  Report Type: Spontaneous
  Country: US (occurrence: US)
  Receive Date: 20180410
  Receipt Date: 20180413
  Transmission Date: 20180711
  Serious: Yes (Other)
  Sender: FDA-Public Use
  Company Number: US-STRIDES ARCOLAB LIMITED-2018SP002675

PATIENT

DRUGS (2)
  1. VANCOMYCIN [Suspect]
     Active Substance: VANCOMYCIN
     Indication: PRODUCT USED FOR UNKNOWN INDICATION
     Dosage: 1 MG/0.1ML, UNKNOWN
     Route: 047
  2. CEFTAZIDIME. [Concomitant]
     Active Substance: CEFTAZIDIME
     Indication: PRODUCT USED FOR UNKNOWN INDICATION
     Dosage: 2.25 MG, UNKNOWN

REACTIONS (8)
  - Corneal oedema [Unknown]
  - Retinitis [Unknown]
  - Retinal vasculitis [Unknown]
  - Necrotising retinitis [Unknown]
  - Ocular discomfort [Unknown]
  - Eye pain [Unknown]
  - Retinal haemorrhage [Unknown]
  - Visual impairment [Unknown]
